FAERS Safety Report 7531007-3 (Version None)
Quarter: 2011Q2

REPORT INFORMATION
  Report Type: 
  Country: None (occurrence: None)
  Receive Date: 20110608
  Receipt Date: 20090717
  Transmission Date: 20111010
  Serious: Yes (Other)
  Sender: FDA-Public Use
  Company Number: US-BAYER-200926739NA

PATIENT
  Sex: Male
  Weight: 109 kg

DRUGS (9)
  1. HYDROCHLOROTHIAZIDE [Concomitant]
     Dosage: 25 UNK, UNK
  2. SIMVASTATIN [Concomitant]
     Dosage: 20 MG, UNK
     Route: 048
  3. AMITRIPTYLINE HCL [Concomitant]
  4. LASIX [Concomitant]
     Route: 048
  5. GEMFIBROZIL [Concomitant]
     Dosage: 600 MG, UNK
     Route: 048
  6. COZAAR [Concomitant]
     Dosage: 50 MG, UNK
     Route: 048
  7. LISINOPRIL [Concomitant]
  8. HYDRALAZINE HCL [Concomitant]
  9. TRASYLOL [Suspect]
     Indication: CORONARY ARTERY BYPASS
     Dosage: UNK
     Route: 042
     Dates: start: 20060622

REACTIONS (12)
  - STRESS [None]
  - ANXIETY [None]
  - MULTI-ORGAN FAILURE [None]
  - RENAL FAILURE [None]
  - ANHEDONIA [None]
  - UNEVALUABLE EVENT [None]
  - PAIN [None]
  - FEAR [None]
  - RENAL IMPAIRMENT [None]
  - EMOTIONAL DISTRESS [None]
  - RENAL INJURY [None]
  - INJURY [None]
